FAERS Safety Report 8066549-8 (Version None)
Quarter: 2012Q1

REPORT INFORMATION
  Report Type: 
  Country: None (occurrence: None)
  Receive Date: 20120124
  Receipt Date: 20120116
  Transmission Date: 20120608
  Serious: Yes (Hospitalization)
  Sender: FDA-Public Use
  Company Number: PHHY2012AR003878

PATIENT
  Sex: Male

DRUGS (1)
  1. EXELON [Suspect]
     Indication: AMNESIA
     Dosage: 4.6 MG, BID (5 CM)
     Route: 062
     Dates: start: 20110801

REACTIONS (2)
  - HIATUS HERNIA [None]
  - GASTRIC HAEMORRHAGE [None]
